FAERS Safety Report 6227546-8 (Version None)
Quarter: 2009Q2

REPORT INFORMATION
  Report Type: 
  Country: None (occurrence: None)
  Receive Date: 20090612
  Receipt Date: 20090529
  Transmission Date: 20091009
  Serious: Yes (Death, Hospitalization)
  Sender: FDA-Public Use
  Company Number: DK-PFIZER INC-2008101092

PATIENT
  Age: 58 Year

DRUGS (2)
  1. ZARATOR [Suspect]
     Dosage: UNK MG, UNK
     Route: 048
     Dates: start: 20020101, end: 20080828
  2. ZOCOR [Concomitant]
     Indication: HYPERLIPIDAEMIA
     Dosage: 40 MG, 1X/DAY
     Route: 048
     Dates: start: 19970731

REACTIONS (2)
  - MULTI-ORGAN FAILURE [None]
  - PANCREATITIS [None]
